FAERS Safety Report 6819124-4 (Version None)
Quarter: 2010Q3

REPORT INFORMATION
  Report Type: 
  Country: None (occurrence: None)
  Receive Date: 20100707
  Receipt Date: 20100628
  Transmission Date: 20110219
  Serious: Yes (Hospitalization)
  Sender: FDA-Public Use
  Company Number: ES-JNJFOC-20100608336

PATIENT
  Age: 78 Year
  Sex: Male

DRUGS (6)
  1. RISPERDAL [Suspect]
     Indication: DEPRESSION
     Route: 048
  2. PAROXETINA [Suspect]
     Indication: DEPRESSION
     Route: 048
  3. LINEZOLID [Suspect]
     Indication: STAPHYLOCOCCAL INFECTION
     Route: 048
  4. NOLOTIL [Concomitant]
     Indication: PAIN
     Route: 048
  5. MANIDON [Concomitant]
     Indication: PRODUCT USED FOR UNKNOWN INDICATION
     Route: 048
  6. ACETAMINOPHEN [Concomitant]
     Indication: PAIN
     Route: 048

REACTIONS (3)
  - BLOOD CALCIUM INCREASED [None]
  - LEUKOCYTOCLASTIC VASCULITIS [None]
  - OFF LABEL USE [None]
